FAERS Safety Report 9460108 (Version 1)
Quarter: 2013Q3

REPORT INFORMATION
  Report Type: Spontaneous
  Country: PL (occurrence: PL)
  Receive Date: 20130815
  Receipt Date: 20130815
  Transmission Date: 20140515
  Serious: Yes (Other)
  Sender: FDA-Public Use
  Company Number: PHHY2013PL085385

PATIENT
  Age: 19 Year
  Sex: Male

DRUGS (14)
  1. CEFTAZIDIME [Suspect]
     Indication: ANTIBIOTIC THERAPY
  2. CEFTAZIDIME [Suspect]
     Indication: PNEUMONIA
  3. CEFTAZIDIME [Suspect]
     Indication: SINUSITIS
  4. CLARITHROMYCIN [Suspect]
     Indication: ANTIBIOTIC THERAPY
  5. CLARITHROMYCIN [Suspect]
     Indication: SINUSITIS
  6. CLARITHROMYCIN [Suspect]
     Indication: PNEUMONIA
  7. MEROPENEM [Suspect]
     Indication: ANTIBIOTIC THERAPY
  8. MEROPENEM [Suspect]
     Indication: PNEUMONIA
  9. MEROPENEM [Suspect]
     Indication: SINUSITIS
  10. VANCOMYCIN [Suspect]
     Indication: ANTIBIOTIC THERAPY
  11. VANCOMYCIN [Suspect]
     Indication: SINUSITIS
  12. VANCOMYCIN [Suspect]
     Indication: PNEUMONIA
  13. AZITHROMYCIN [Suspect]
     Indication: ANTIBIOTIC THERAPY
  14. CEFUROXIME [Suspect]
     Indication: ANTIBIOTIC THERAPY

REACTIONS (10)
  - Pneumonia [Recovered/Resolved]
  - Sinusitis [Recovered/Resolved]
  - Cough [Recovered/Resolved]
  - Pyrexia [Recovered/Resolved]
  - Tonsillar hypertrophy [Recovered/Resolved]
  - Lymph node pain [Recovered/Resolved]
  - Condition aggravated [Recovered/Resolved]
  - Oropharyngeal pain [Recovered/Resolved]
  - Drug ineffective [Unknown]
  - Lymph node palpable [Recovered/Resolved]
